FAERS Safety Report 19918798 (Version 2)
Quarter: 2021Q4

REPORT INFORMATION
  Report Type: Spontaneous
  Country: US (occurrence: US)
  Receive Date: 20211004
  Receipt Date: 20211011
  Transmission Date: 20220303
  Serious: No
  Sender: FDA-Public Use
  Company Number: US-PFIZER INC-202101065378

PATIENT
  Age: 68 Year
  Sex: Male
  Weight: 88.45 kg

DRUGS (4)
  1. PHENELZINE SULFATE [Suspect]
     Active Substance: PHENELZINE SULFATE
     Indication: Depression
     Dosage: 15 MG (TWO TABLETS OR THREE TABLETS A DAY. A FEW DAYS A WEEK HE TAKES 2 INSTEAD OF 3.)
  2. PHENELZINE SULFATE [Suspect]
     Active Substance: PHENELZINE SULFATE
     Dosage: UNK
  3. DIVALPROEX SODIUM [Concomitant]
     Active Substance: DIVALPROEX SODIUM
     Indication: Focal dyscognitive seizures
     Dosage: 250 MG, 1X/DAY
  4. GABAPENTIN [Concomitant]
     Active Substance: GABAPENTIN
     Indication: Focal dyscognitive seizures
     Dosage: UNK

REACTIONS (5)
  - Drug ineffective [Unknown]
  - Intentional product misuse [Unknown]
  - Psychomotor hyperactivity [Unknown]
  - Insomnia [Unknown]
  - Hypomania [Unknown]
